FAERS Safety Report 5471551-6 (Version None)
Quarter: 2007Q3

REPORT INFORMATION
  Report Type: 
  Country: None (occurrence: None)
  Receive Date: 20070928
  Receipt Date: 20070105
  Transmission Date: 20080115
  Serious: No
  Sender: FDA-Public Use
  Company Number: US-BRISTOL-MYERS SQUIBB COMPANY-13634498

PATIENT
  Sex: Male
  Weight: 95 kg

DRUGS (5)
  1. DEFINITY [Suspect]
     Indication: STRESS ECHOCARDIOGRAM
     Route: 042
     Dates: start: 20070105, end: 20070105
  2. GEMFIBROZIL [Concomitant]
  3. ZYBAN [Concomitant]
  4. LISINOPRIL AND HYDROCHLOROTHIAZIDE [Concomitant]
  5. ZOCOR [Concomitant]

REACTIONS (3)
  - FLUSHING [None]
  - HEADACHE [None]
  - NAUSEA [None]
